FAERS Safety Report 15322380 (Version 3)
Quarter: 2018Q4

REPORT INFORMATION
  Report Type: Spontaneous
  Country: NO (occurrence: NO)
  Receive Date: 20180827
  Receipt Date: 20181123
  Transmission Date: 20190204
  Serious: Yes (Hospitalization, Other)
  Sender: FDA-Public Use
  Company Number: PHHY2018NO025080

PATIENT
  Age: 59 Year
  Sex: Male

DRUGS (18)
  1. CEFOTAXIME [Concomitant]
     Active Substance: CEFOTAXIME SODIUM
     Indication: PNEUMONIA
     Dosage: 2 G, Q12H
     Route: 042
  2. CISPLATIN. [Concomitant]
     Active Substance: CISPLATIN
     Indication: TESTICULAR SEMINOMA (PURE) STAGE I
  3. BLEOMYCIN SULFATE [Suspect]
     Active Substance: BLEOMYCIN SULFATE
     Indication: SEMINOMA
  4. CISPLATIN. [Concomitant]
     Active Substance: CISPLATIN
     Indication: SEMINOMA
     Route: 065
  5. BLEOMYCIN SULFATE [Suspect]
     Active Substance: BLEOMYCIN SULFATE
     Indication: LYMPHADENOPATHY
     Dosage: UNK, AFTER INITIATION OF THE SECOND BEP CYCLE
     Route: 065
  6. PREDNISOLONE. [Suspect]
     Active Substance: PREDNISOLONE
     Indication: PNEUMONITIS
     Dosage: 50 MG, UNK
     Route: 065
  7. ENOXAPARIN [Concomitant]
     Active Substance: ENOXAPARIN
     Indication: PULMONARY EMBOLISM
     Dosage: 1 MG/KG, Q12H
     Route: 065
  8. ETOPOSIDE. [Concomitant]
     Active Substance: ETOPOSIDE
     Indication: TESTICULAR SEMINOMA (PURE) STAGE I
  9. CEFOTAXIME [Concomitant]
     Active Substance: CEFOTAXIME SODIUM
     Dosage: 1 G, Q8H
     Route: 042
  10. ETOPOSIDE. [Concomitant]
     Active Substance: ETOPOSIDE
     Indication: LYMPHADENOPATHY
  11. IMATINIB. [Suspect]
     Active Substance: IMATINIB MESYLATE
     Indication: TESTICULAR SEMINOMA (PURE) STAGE I
     Dosage: 300 MG, QD
     Route: 065
  12. BLEOMYCIN SULFATE [Suspect]
     Active Substance: BLEOMYCIN SULFATE
     Indication: RECURRENT CANCER
  13. ETOPOSIDE. [Concomitant]
     Active Substance: ETOPOSIDE
     Indication: SEMINOMA
     Route: 065
  14. ETOPOSIDE. [Concomitant]
     Active Substance: ETOPOSIDE
     Indication: RECURRENT CANCER
  15. CISPLATIN. [Concomitant]
     Active Substance: CISPLATIN
     Indication: LYMPHADENOPATHY
  16. PREDNISOLONE. [Suspect]
     Active Substance: PREDNISOLONE
     Indication: PULMONARY TOXICITY
     Dosage: 40 MG, UNK
     Route: 065
  17. CISPLATIN. [Concomitant]
     Active Substance: CISPLATIN
     Indication: RECURRENT CANCER
  18. OXYGEN. [Concomitant]
     Active Substance: OXYGEN
     Indication: PNEUMONIA
     Dosage: 6 L, UNK (NASAL CATHETER)
     Route: 045

REACTIONS (3)
  - Therapeutic response decreased [Unknown]
  - Pneumonitis [Recovering/Resolving]
  - Pneumocystis jirovecii infection [Unknown]
